FAERS Safety Report 4527772-X (Version None)
Quarter: 2004Q4

REPORT INFORMATION
  Report Type: 
  Country: None (occurrence: None)
  Receive Date: 20041123
  Receipt Date: 20040507
  Transmission Date: 20050328
  Serious: Yes (Other)
  Sender: FDA-Public Use
  Company Number: CHPA2004US02408

PATIENT
  Age: 59 Year
  Sex: Female
  Weight: 54.4 kg

DRUGS (5)
  1. RITEAID STEP 2 14MG(NCH)(NCOTINE) TRANS-THERAPEUTIC-SYSTEM [Suspect]
     Indication: SMOKING CESSATION THERAPY
     Dosage: 14 MG, QD, TRANSDERMAL
     Route: 062
     Dates: start: 20000101, end: 20040506
  2. ESTRADIOL [Concomitant]
  3. SYNTHROID [Concomitant]
  4. PREVACID [Concomitant]
  5. FISH OIL [Concomitant]

REACTIONS (6)
  - APPLICATION SITE DERMATITIS [None]
  - APPLICATION SITE ERYTHEMA [None]
  - APPLICATION SITE PAIN [None]
  - HYPERSENSITIVITY [None]
  - NICOTINE DEPENDENCE [None]
  - URTICARIA [None]
